FAERS Safety Report 16190465 (Version 1)
Quarter: 2019Q2

REPORT INFORMATION
  Report Type: Spontaneous
  Country: US (occurrence: US)
  Receive Date: 20190412
  Receipt Date: 20190412
  Transmission Date: 20190711
  Serious: No
  Sender: FDA-Public Use
  Company Number: US-PFIZER INC-2019148613

PATIENT
  Age: 68 Year
  Sex: Male

DRUGS (1)
  1. GEMFIBROZIL. [Suspect]
     Active Substance: GEMFIBROZIL
     Dosage: UNK

REACTIONS (6)
  - Fatigue [Unknown]
  - Asthenia [Unknown]
  - Myalgia [Unknown]
  - Muscle spasms [Unknown]
  - Malaise [Unknown]
  - Drug hypersensitivity [Unknown]
